FAERS Safety Report 20162347 (Version 2)
Quarter: 2021Q4

REPORT INFORMATION
  Report Type: Report from Study
  Country: IT (occurrence: IT)
  Receive Date: 20211208
  Receipt Date: 20211220
  Transmission Date: 20220303
  Serious: Yes (Death, Disabling)
  Sender: FDA-Public Use
  Company Number: IT-PFIZER INC-202101738451

PATIENT
  Age: 75 Year
  Sex: Male

DRUGS (5)
  1. TAFAMIDIS [Suspect]
     Active Substance: TAFAMIDIS
     Indication: Cardiac amyloidosis
     Dosage: 61 MG
  2. FUROSEMIDE [Concomitant]
     Active Substance: FUROSEMIDE
  3. SACUBITRIL\VALSARTAN [Concomitant]
     Active Substance: SACUBITRIL\VALSARTAN
  4. DICUMAROL [Concomitant]
     Active Substance: DICUMAROL
  5. QUETIAPINE [Concomitant]
     Active Substance: QUETIAPINE

REACTIONS (2)
  - Dementia [Fatal]
  - Cardiac arrest [Fatal]

NARRATIVE: CASE EVENT DATE: 20200701
